FAERS Safety Report 20582300 (Version 1)
Quarter: 2022Q1

REPORT INFORMATION
  Report Type: Spontaneous
  Country: US (occurrence: None)
  Receive Date: 20220310
  Receipt Date: 20220310
  Transmission Date: 20220423
  Serious: No
  Sender: FDA-Public Use
  Company Number: None

PATIENT
  Age: 81 Year
  Sex: Male
  Weight: 229.9 kg

DRUGS (12)
  1. CAPECITABINE [Suspect]
     Active Substance: CAPECITABINE
     Indication: Colon cancer
     Dosage: FREQUENCY : TWICE A WEEK;?
     Route: 048
  2. AMIODARONE [Concomitant]
     Active Substance: AMIODARONE
  3. ATORVASTATIN [Concomitant]
  4. AVASTIN [Concomitant]
  5. ELIQUIS [Concomitant]
  6. FUROSEMIDE [Concomitant]
  7. K-TAB [Concomitant]
     Active Substance: POTASSIUM CHLORIDE
  8. LOSARTAN [Concomitant]
     Active Substance: LOSARTAN
  9. METOPROLOL [Concomitant]
  10. MVASI [Concomitant]
     Active Substance: BEVACIZUMAB-AWWB
  11. ONDANSETRON [Concomitant]
     Active Substance: ONDANSETRON
  12. PACERONE [Concomitant]
     Active Substance: AMIODARONE HYDROCHLORIDE

REACTIONS (1)
  - Drug ineffective [None]
